FAERS Safety Report 21456759 (Version 3)
Quarter: 2023Q2

REPORT INFORMATION
  Report Type: Spontaneous
  Country: US (occurrence: US)
  Receive Date: 20221014
  Receipt Date: 20230501
  Transmission Date: 20230722
  Serious: Yes (Other)
  Sender: FDA-Public Use
  Company Number: US-BRISTOL-MYERS SQUIBB COMPANY-2022-120611

PATIENT
  Age: 87 Year
  Sex: Female
  Weight: 53.52 kg

DRUGS (2)
  1. REVLIMID [Suspect]
     Active Substance: LENALIDOMIDE
     Indication: Diffuse large B-cell lymphoma
     Dosage: FREQ: DAILY FOR 21DAYS
     Route: 048
     Dates: start: 20220301
  2. REVLIMID [Suspect]
     Active Substance: LENALIDOMIDE
     Dosage: 21 DAY ON 7 DAY OFF
     Route: 048
     Dates: start: 20220301

REACTIONS (5)
  - Weight decreased [Unknown]
  - Off label use [Unknown]
  - Limb discomfort [Unknown]
  - Dry mouth [Unknown]
  - Neuropathy peripheral [Unknown]
